FAERS Safety Report 9560911 (Version 1)
Quarter: 2013Q3

REPORT INFORMATION
  Report Type: Spontaneous
  Country: US (occurrence: US)
  Receive Date: 20130927
  Receipt Date: 20130927
  Transmission Date: 20140515
  Serious: No
  Sender: FDA-Public Use
  Company Number: US-BIOGENIDEC-2013BI055190

PATIENT
  Age: 49 Year
  Sex: Female

DRUGS (4)
  1. TECFIDERA [Suspect]
     Indication: MULTIPLE SCLEROSIS
     Route: 048
     Dates: start: 20130528, end: 20130603
  2. TECFIDERA [Suspect]
     Indication: MULTIPLE SCLEROSIS
     Route: 048
     Dates: start: 20130604
  3. CARTIA [Concomitant]
     Indication: HYPERTENSION
  4. PROVIGIL [Concomitant]
     Indication: MULTIPLE SCLEROSIS

REACTIONS (4)
  - Flushing [Recovered/Resolved]
  - Respiratory rate increased [Recovered/Resolved]
  - Dyspnoea [Recovered/Resolved]
  - Urinary tract infection [Recovered/Resolved]
